FAERS Safety Report 21761443 (Version 1)
Quarter: 2022Q4

REPORT INFORMATION
  Report Type: Report from Study
  Country: US (occurrence: US)
  Receive Date: 20221221
  Receipt Date: 20221221
  Transmission Date: 20230113
  Serious: Yes (Other)
  Sender: FDA-Public Use
  Company Number: US-BAYER-2022A155390

PATIENT
  Age: 52 Year
  Sex: Male

DRUGS (2)
  1. STIVARGA [Suspect]
     Active Substance: REGORAFENIB
     Indication: Gastrointestinal stromal tumour
     Dosage: 120 MG, QD
     Route: 048
     Dates: start: 20221103, end: 20221107
  2. STIVARGA [Suspect]
     Active Substance: REGORAFENIB
     Indication: Gastrointestinal stromal tumour
     Dosage: 120 MG, QD
     Route: 048
     Dates: start: 20221112

REACTIONS (14)
  - Perineal abscess [Not Recovered/Not Resolved]
  - Pyrexia [Not Recovered/Not Resolved]
  - Pain [Not Recovered/Not Resolved]
  - Night sweats [Not Recovered/Not Resolved]
  - Off label use [None]
  - Chest pain [Recovering/Resolving]
  - Pain in extremity [Recovering/Resolving]
  - Abdominal tenderness [Not Recovered/Not Resolved]
  - Abdominal pain upper [Not Recovered/Not Resolved]
  - Burning sensation [Recovering/Resolving]
  - Fatigue [Recovering/Resolving]
  - Exercise tolerance decreased [Not Recovered/Not Resolved]
  - Decreased appetite [Recovering/Resolving]
  - Product dose omission issue [None]

NARRATIVE: CASE EVENT DATE: 20221103
